FAERS Safety Report 19211439 (Version 1)
Quarter: 2021Q2

REPORT INFORMATION
  Report Type: Spontaneous
  Country: US (occurrence: US)
  Receive Date: 20210503
  Receipt Date: 20210503
  Transmission Date: 20210717
  Serious: No
  Sender: FDA-Public Use
  Company Number: None

PATIENT
  Age: 75 Year
  Sex: Male

DRUGS (2)
  1. OXALIPLATIN (OXALIPLATIN 100MG/VIL (PF) INJ) [Suspect]
     Active Substance: OXALIPLATIN
     Dates: start: 20210329
  2. FLUOROURACIL (FLOUROURACIL 50MG/ML INJ) [Suspect]
     Active Substance: FLUOROURACIL
     Dates: start: 20210329

REACTIONS (2)
  - Weight decreased [None]
  - Decreased appetite [None]

NARRATIVE: CASE EVENT DATE: 20210409
